FAERS Safety Report 5107974-4 (Version None)
Quarter: 2006Q3

REPORT INFORMATION
  Report Type: 
  Country: None (occurrence: None)
  Receive Date: 20060914
  Receipt Date: 20060830
  Transmission Date: 20061208
  Serious: Yes (Hospitalization)
  Sender: FDA-Public Use
  Company Number: US-CVT-061499

PATIENT
  Age: 91 Year
  Sex: Female
  Weight: 46.3 kg

DRUGS (7)
  1. RANEXA [Suspect]
     Indication: ANGINA PECTORIS
     Dosage: 500 MG BID ORAL
     Route: 048
     Dates: start: 20060621, end: 20060707
  2. WARFARIN SODIUM [Concomitant]
  3. PLAVIX [Concomitant]
  4. PRAVACHOL [Concomitant]
  5. INDERAL LA [Concomitant]
  6. LASIX [Concomitant]
  7. NITROGLYCERIN [Concomitant]

REACTIONS (6)
  - ANGINA UNSTABLE [None]
  - CONFUSIONAL STATE [None]
  - DISORIENTATION [None]
  - HYPOAESTHESIA [None]
  - MENTAL STATUS CHANGES [None]
  - TRANSIENT ISCHAEMIC ATTACK [None]
